FAERS Safety Report 11610603 (Version 1)
Quarter: 2015Q4

REPORT INFORMATION
  Report Type: Spontaneous
  Country: US (occurrence: None)
  Receive Date: 20151007
  Receipt Date: 20151007
  Transmission Date: 20160304
  Serious: No
  Sender: FDA-Public Use
  Company Number: None

PATIENT
  Age: 62 Year
  Sex: Female
  Weight: 78.02 kg

DRUGS (11)
  1. QUERCETIN [Concomitant]
     Active Substance: QUERCETIN
  2. LYSINE [Concomitant]
     Active Substance: LYSINE
  3. VITAMINS A, B, C, D, E [Concomitant]
  4. BROMELAIN [Concomitant]
     Active Substance: BROMELAINS
  5. MAGNESIUM [Concomitant]
     Active Substance: MAGNESIUM
  6. DILTIAZEM [Concomitant]
     Active Substance: DILTIAZEM
  7. TURMERIC [Concomitant]
     Active Substance: TURMERIC
  8. HCTZ PROPAFENONE [Concomitant]
  9. IRON [Concomitant]
     Active Substance: IRON
  10. ELIQUIS [Suspect]
     Active Substance: APIXABAN
     Indication: ATRIAL FIBRILLATION
     Dosage: 1
     Route: 048
     Dates: start: 20150925, end: 20151005
  11. CALCIUM [Concomitant]
     Active Substance: CALCIUM

REACTIONS (5)
  - Dizziness [None]
  - Abdominal pain upper [None]
  - Heart rate abnormal [None]
  - Feeding disorder [None]
  - Blood pressure fluctuation [None]

NARRATIVE: CASE EVENT DATE: 20150927
